FAERS Safety Report 7587180-4 (Version None)
Quarter: 2011Q3

REPORT INFORMATION
  Report Type: 
  Country: None (occurrence: None)
  Receive Date: 20110701
  Receipt Date: 20110620
  Transmission Date: 20111222
  Serious: Yes (Other)
  Sender: FDA-Public Use
  Company Number: SE-ELI_LILLY_AND_COMPANY-SE201106007254

PATIENT
  Sex: Female

DRUGS (1)
  1. OLANZAPINE [Suspect]
     Indication: ANXIETY
     Dosage: 5 MG, QD

REACTIONS (2)
  - ANAEMIA [None]
  - OFF LABEL USE [None]
